FAERS Safety Report 8108834-7 (Version None)
Quarter: 2012Q1

REPORT INFORMATION
  Report Type: 
  Country: None (occurrence: None)
  Receive Date: 20120202
  Receipt Date: 20120103
  Transmission Date: 20120608
  Serious: No
  Sender: FDA-Public Use
  Company Number: US-AMGEN-USASP2012000262

PATIENT
  Age: 26 Year
  Sex: Male

DRUGS (1)
  1. ENBREL [Suspect]
     Indication: ANKYLOSING SPONDYLITIS
     Dosage: 50 MG, QWK
     Dates: start: 20111207, end: 20111228

REACTIONS (7)
  - NAUSEA [None]
  - HEADACHE [None]
  - ASTHENIA [None]
  - DIARRHOEA [None]
  - VOMITING [None]
  - DIZZINESS [None]
  - FATIGUE [None]
